FAERS Safety Report 4380666-5 (Version None)
Quarter: 2004Q2

REPORT INFORMATION
  Report Type: 
  Country: None (occurrence: None)
  Receive Date: 20040614
  Receipt Date: 20040603
  Transmission Date: 20050107
  Serious: Yes (Hospitalization, Other)
  Sender: FDA-Public Use
  Company Number: HQWYE233103JUN04

PATIENT
  Age: 69 Year
  Sex: Male

DRUGS (11)
  1. LEUCOVORIN CALCIUM [Suspect]
     Indication: COLORECTAL CANCER
     Dosage: 360 MG 1X PER 1 DAY, INTRAVENOUS
     Route: 042
     Dates: start: 20040421, end: 20040421
  2. FLUOROURACIL [Suspect]
     Indication: COLORECTAL CANCER
     Dosage: 1080 MG/BOLUS 720 MG, INTRAVENOUS
     Route: 042
     Dates: start: 20040421, end: 20040421
  3. OXALIPLATIN [Suspect]
     Indication: COLORECTAL CANCER
     Dosage: 135 MG 1X PER DAY, INTRAVENOUS
     Route: 042
     Dates: start: 20040421, end: 20040421
  4. CETUXIMAB (CETUXIMAB) [Concomitant]
  5. LOVENOX [Concomitant]
  6. NEUPOGEN (FILGRASTIM) [Concomitant]
  7. ACYCLOVIR [Concomitant]
  8. MINOCYCLINE HCL [Concomitant]
  9. LOPERAMIDE HCL [Concomitant]
  10. PRAZOSIN GITS [Concomitant]
  11. PROZAC [Concomitant]

REACTIONS (1)
  - PNEUMONIA [None]
